FAERS Safety Report 23858037 (Version 1)
Quarter: 2024Q2

REPORT INFORMATION
  Report Type: Other
  Country: US (occurrence: None)
  Receive Date: 20240515
  Receipt Date: 20240515
  Transmission Date: 20240715
  Serious: Yes (Other)
  Sender: FDA-Public Use
  Company Number: US-ROCHE-3559862

PATIENT
  Age: 42 Year
  Sex: Male

DRUGS (5)
  1. OCREVUS [Suspect]
     Active Substance: OCRELIZUMAB
     Indication: Multiple sclerosis
     Dosage: THEN 600 MG EVERY 6 MONTH, DATE OF TREATMENT: 05/APR/2024, 21/SEP/2023, 05/OCT/2023
     Route: 042
  2. METHYLPREDNISOLONE [Concomitant]
     Active Substance: METHYLPREDNISOLONE
  3. ACETAMINOPHEN [Concomitant]
     Active Substance: ACETAMINOPHEN
  4. DIPHENHYDRAMINE [Concomitant]
     Active Substance: DIPHENHYDRAMINE
  5. TERIFLUNOMIDE [Concomitant]
     Active Substance: TERIFLUNOMIDE

REACTIONS (10)
  - Hypoaesthesia [Unknown]
  - Demyelination [Unknown]
  - Fall [Unknown]
  - Contusion [Unknown]
  - Paraesthesia [Unknown]
  - Metastases to spine [Unknown]
  - Blood chloride increased [Unknown]
  - Blood creatinine decreased [Unknown]
  - Blood calcium increased [Unknown]
  - White blood cell count increased [Unknown]
